FAERS Safety Report 12471196 (Version 3)
Quarter: 2016Q3

REPORT INFORMATION
  Report Type: Spontaneous
  Country: US (occurrence: US)
  Receive Date: 20160616
  Receipt Date: 20160929
  Transmission Date: 20161109
  Serious: Yes (Hospitalization, Other)
  Sender: FDA-Public Use
  Company Number: US-ELI_LILLY_AND_COMPANY-US201606004256

PATIENT
  Age: 44 Year
  Sex: Male
  Weight: 123 kg

DRUGS (6)
  1. ANDROGEL [Suspect]
     Active Substance: TESTOSTERONE
     Indication: ANDROGEN REPLACEMENT THERAPY
     Dosage: UNK, UNKNOWN
     Route: 065
     Dates: start: 20081125, end: 201301
  2. LOTREL                             /01388302/ [Concomitant]
     Indication: HYPERTENSION
     Dosage: UNK, UNKNOWN
     Route: 065
     Dates: start: 200606
  3. TIMOLOL. [Concomitant]
     Active Substance: TIMOLOL
     Indication: OCULAR DISCOMFORT
     Dosage: UNK, UNKNOWN
     Route: 065
     Dates: start: 201212
  4. AXIRON [Suspect]
     Active Substance: TESTOSTERONE
     Dosage: THREE DOSES, QD
     Route: 062
     Dates: start: 20140331, end: 20140623
  5. AXIRON [Suspect]
     Active Substance: TESTOSTERONE
     Indication: ANDROGEN REPLACEMENT THERAPY
     Dosage: 60 MG, QD
     Route: 062
     Dates: start: 20110902
  6. ASPIRIN                            /00002701/ [Concomitant]
     Active Substance: ASPIRIN
     Indication: PROPHYLAXIS
     Dosage: UNK, UNKNOWN
     Route: 065
     Dates: start: 2006

REACTIONS (3)
  - Peripheral venous disease [Unknown]
  - Varicose vein [Unknown]
  - Thrombophlebitis superficial [Not Recovered/Not Resolved]

NARRATIVE: CASE EVENT DATE: 20140619
